FAERS Safety Report 4985834-7 (Version None)
Quarter: 2006Q2

REPORT INFORMATION
  Report Type: 
  Country: None (occurrence: None)
  Receive Date: 20060421
  Receipt Date: 20060410
  Transmission Date: 20061013
  Serious: Yes (Hospitalization, Disabling)
  Sender: FDA-Public Use
  Company Number: 2006038496

PATIENT
  Age: 46 Year
  Sex: Female

DRUGS (5)
  1. EPELIN KAPSEALS (PHENYTOIN SODIUM) [Suspect]
     Indication: CONVULSION
     Dosage: 200 MG (100 MG, 2 IN 1 D), ORAL
     Route: 048
     Dates: end: 20060101
  2. DEPAKENE [Concomitant]
  3. CITALOPRAM (CITALOPRAM) [Concomitant]
  4. PURAN T4 (LEVOTHYROXINE SODIUM) [Concomitant]
  5. CALCIUM (CALCIUM) [Concomitant]

REACTIONS (4)
  - APHASIA [None]
  - CONDITION AGGRAVATED [None]
  - CONVULSION [None]
  - PARALYSIS FLACCID [None]
